FAERS Safety Report 9361183 (Version 2)
Quarter: 2013Q3

REPORT INFORMATION
  Report Type: Spontaneous
  Country: IT (occurrence: IT)
  Receive Date: 20130621
  Receipt Date: 20130710
  Transmission Date: 20140515
  Serious: Yes (Hospitalization)
  Sender: FDA-Public Use
  Company Number: IT-VERTEX PHARMACEUTICALS INC-2013-007313

PATIENT
  Age: 65 Year
  Sex: Male

DRUGS (1)
  1. INCIVO [Suspect]
     Indication: ANTIVIRAL TREATMENT
     Route: 048
     Dates: start: 20130510, end: 20130610

REACTIONS (1)
  - Atrial fibrillation [Unknown]
